FAERS Safety Report 8920293 (Version 3)
Quarter: 2013Q3

REPORT INFORMATION
  Report Type: Spontaneous
  Country: DK (occurrence: DK)
  Receive Date: 20121121
  Receipt Date: 20130702
  Transmission Date: 20140515
  Serious: Yes (Hospitalization)
  Sender: FDA-Public Use
  Company Number: DK-ABBOTT-12P-044-1010127-00

PATIENT
  Age: 39 Year
  Sex: Male
  Weight: 100 kg

DRUGS (3)
  1. HUMIRA [Suspect]
     Indication: PSORIATIC ARTHROPATHY
     Dates: start: 20100317, end: 20120112
  2. HUMIRA [Suspect]
     Dates: start: 20121017
  3. METHOTREXATE [Concomitant]
     Indication: PRODUCT USED FOR UNKNOWN INDICATION
     Dates: start: 20100118, end: 20120114

REACTIONS (3)
  - IgA nephropathy [Not Recovered/Not Resolved]
  - Blood creatinine increased [Recovering/Resolving]
  - Hyperkalaemia [Unknown]
